FAERS Safety Report 10243084 (Version 1)
Quarter: 2014Q2

REPORT INFORMATION
  Report Type: Spontaneous
  Country: US (occurrence: None)
  Receive Date: 20140613
  Receipt Date: 20140613
  Transmission Date: 20141212
  Serious: Yes (Hospitalization)
  Sender: FDA-Public Use
  Company Number: 2013RT000043

PATIENT
  Age: 12 Year
  Sex: Male
  Weight: 41.5 kg

DRUGS (8)
  1. PROCYSBI [Suspect]
     Indication: CYSTINOSIS
     Route: 048
     Dates: start: 201308
  2. LEVOCARNITINE (LEVOCARNITINE) [Concomitant]
  3. SODIUM BICARBONATE (SODIUM BICARBONATE) [Concomitant]
  4. NEUTROPIN (NEUTROPIN) [Concomitant]
  5. VITAMIN C (ASCORBIC ACID) [Concomitant]
  6. ROCALTROL (CALCITRIOL) [Concomitant]
  7. POTASSIUM (POTASSIUM) [Concomitant]
  8. ENALAPRIL (ENALAPRIL) [Concomitant]

REACTIONS (5)
  - Inappropriate schedule of drug administration [None]
  - Dehydration [None]
  - Vomiting [None]
  - Product taste abnormal [None]
  - Product odour abnormal [None]
